FAERS Safety Report 24525163 (Version 15)
Quarter: 2025Q2

REPORT INFORMATION
  Report Type: Report from Study
  Country: US (occurrence: US)
  Receive Date: 20241019
  Receipt Date: 20250623
  Transmission Date: 20250716
  Serious: Yes (Hospitalization, Other)
  Sender: TAKEDA
  Company Number: US-TAKEDA-2022TUS048172

PATIENT
  Age: 52 Year
  Sex: Female
  Weight: 60 kg

DRUGS (43)
  1. GLASSIA [Suspect]
     Active Substance: .ALPHA.1-PROTEINASE INHIBITOR HUMAN
     Indication: Alpha-1 antitrypsin deficiency
     Dosage: 60 MILLIGRAM/KILOGRAM, 1/WEEK
     Dates: start: 20210420
  2. GLASSIA [Suspect]
     Active Substance: .ALPHA.1-PROTEINASE INHIBITOR HUMAN
     Dosage: 60 MILLIGRAM/KILOGRAM, Q4WEEKS
  3. GLASSIA [Suspect]
     Active Substance: .ALPHA.1-PROTEINASE INHIBITOR HUMAN
     Dosage: 60 MILLIGRAM/KILOGRAM, 1/WEEK
     Dates: start: 202501
  4. GLASSIA [Suspect]
     Active Substance: .ALPHA.1-PROTEINASE INHIBITOR HUMAN
     Dosage: 60 MILLIGRAM/KILOGRAM, 1/WEEK
  5. CYMBALTA [Suspect]
     Active Substance: DULOXETINE HYDROCHLORIDE
     Indication: Product used for unknown indication
  6. ACETAMINOPHEN [Concomitant]
     Active Substance: ACETAMINOPHEN
  7. EPINEPHRINE [Concomitant]
     Active Substance: EPINEPHRINE
  8. IBUPROFEN [Concomitant]
     Active Substance: IBUPROFEN
  9. SODIUM CHLORIDE [Concomitant]
     Active Substance: SODIUM CHLORIDE
  10. BACLOFEN [Concomitant]
     Active Substance: BACLOFEN
  11. TRELEGY ELLIPTA [Concomitant]
     Active Substance: FLUTICASONE FUROATE\UMECLIDINIUM BROMIDE\VILANTEROL TRIFENATATE
  12. PEDIALYTE [Concomitant]
     Active Substance: POTASSIUM CITRATE\SODIUM CITRATE\ZINC
  13. VENTOLIN [Concomitant]
     Active Substance: ALBUTEROL SULFATE
  14. CYCLOBENZAPRINE HYDROCHLORIDE [Concomitant]
     Active Substance: CYCLOBENZAPRINE HYDROCHLORIDE
  15. ASPIRIN [Concomitant]
     Active Substance: ASPIRIN
  16. Lmx [Concomitant]
  17. DIPHENHYDRAMINE HYDROCHLORIDE [Concomitant]
     Active Substance: DIPHENHYDRAMINE HYDROCHLORIDE
  18. DULOXETINE HYDROCHLORIDE [Concomitant]
     Active Substance: DULOXETINE HYDROCHLORIDE
  19. TRAZODONE HCL [Concomitant]
     Active Substance: TRAZODONE HYDROCHLORIDE
  20. ACYCLOVIR [Concomitant]
     Active Substance: ACYCLOVIR
  21. GABAPENTIN [Concomitant]
     Active Substance: GABAPENTIN
  22. CALCIUM CITRATE [Concomitant]
     Active Substance: CALCIUM CITRATE
  23. AMOXICILLIN\CLAVULANATE POTASSIUM [Concomitant]
     Active Substance: AMOXICILLIN\CLAVULANATE POTASSIUM
  24. VITAMIN D3 [Concomitant]
     Active Substance: CHOLECALCIFEROL
  25. DIPHENHYDRAMINE [Concomitant]
     Active Substance: DIPHENHYDRAMINE
  26. FLOVENT HFA [Concomitant]
     Active Substance: FLUTICASONE PROPIONATE
  27. INCRUSE ELLIPTA [Concomitant]
     Active Substance: UMECLIDINIUM BROMIDE
  28. SEREVENT DISKUS [Concomitant]
     Active Substance: SALMETEROL XINAFOATE
  29. TRAMADOL HCL [Concomitant]
     Active Substance: TRAMADOL HYDROCHLORIDE
  30. MAGNESIUM [Concomitant]
     Active Substance: MAGNESIUM
  31. VENTOLIN HFA [Concomitant]
     Active Substance: ALBUTEROL SULFATE
  32. POTASSIUM [Concomitant]
     Active Substance: POTASSIUM
  33. TYLENOL [Concomitant]
     Active Substance: ACETAMINOPHEN
  34. PANTOPRAZOLE SODIUM [Concomitant]
     Active Substance: PANTOPRAZOLE SODIUM
  35. LACTULOSE [Concomitant]
     Active Substance: LACTULOSE
  36. PROPRANOLOL HYDROCHLORIDE [Concomitant]
     Active Substance: PROPRANOLOL HYDROCHLORIDE
  37. MIDODRINE HYDROCHLORIDE [Concomitant]
     Active Substance: MIDODRINE HYDROCHLORIDE
  38. CIPROFLOXACIN HYDROCHLORIDE [Concomitant]
     Active Substance: CIPROFLOXACIN HYDROCHLORIDE
  39. ACETAMINOPHEN AND CODEINE [Concomitant]
     Active Substance: ACETAMINOPHEN\CODEINE PHOSPHATE
  40. SPIRONOLACTONE AND HYDROCHLOROTHIAZIDE [Concomitant]
     Active Substance: HYDROCHLOROTHIAZIDE\SPIRONOLACTONE
  41. ACETAMINOPHEN\HYDROCODONE [Concomitant]
     Active Substance: ACETAMINOPHEN\HYDROCODONE
  42. BENZONATATE [Concomitant]
     Active Substance: BENZONATATE
  43. PREDNISONE [Concomitant]
     Active Substance: PREDNISONE

REACTIONS (43)
  - Intra-abdominal fluid collection [Unknown]
  - Liver disorder [Unknown]
  - Chest injury [Unknown]
  - Pneumonia [Unknown]
  - Dyspnoea [Unknown]
  - Rib fracture [Unknown]
  - Dyspepsia [Unknown]
  - COVID-19 [Not Recovered/Not Resolved]
  - Fall [Unknown]
  - Contusion [Recovering/Resolving]
  - Pain [Unknown]
  - Anxiety [Unknown]
  - Abdominal pain upper [Unknown]
  - Feeling cold [Unknown]
  - Arthralgia [Unknown]
  - Dry mouth [Unknown]
  - Pain of skin [Unknown]
  - Pain in extremity [Unknown]
  - Muscle spasms [Recovering/Resolving]
  - Hypotension [Unknown]
  - Head injury [Unknown]
  - Face injury [Unknown]
  - Limb injury [Unknown]
  - Musculoskeletal chest pain [Not Recovered/Not Resolved]
  - Abnormal loss of weight [Unknown]
  - Respiratory tract congestion [Unknown]
  - Productive cough [Unknown]
  - Dehydration [Unknown]
  - Flatulence [Unknown]
  - Marital problem [Unknown]
  - Inappropriate schedule of product administration [Unknown]
  - Product dose omission issue [Unknown]
  - Nasopharyngitis [Not Recovered/Not Resolved]
  - Abdominal distension [Unknown]
  - Nervousness [Unknown]
  - Insomnia [Unknown]
  - Abdominal pain [Unknown]
  - Vomiting [Unknown]
  - Hepatic enzyme increased [Unknown]
  - Fatigue [Unknown]
  - Dizziness [Unknown]
  - Headache [Unknown]
  - Nausea [Unknown]

NARRATIVE: CASE EVENT DATE: 20221029
